FAERS Safety Report 7477315-6 (Version None)
Quarter: 2011Q2

REPORT INFORMATION
  Report Type: 
  Country: None (occurrence: None)
  Receive Date: 20110513
  Receipt Date: 20110504
  Transmission Date: 20111010
  Serious: No
  Sender: FDA-Public Use
  Company Number: US-BIOGENIDEC-2011BI007543

PATIENT
  Age: 39 Year
  Sex: Male

DRUGS (4)
  1. TYSABRI [Suspect]
     Indication: MULTIPLE SCLEROSIS
     Route: 042
     Dates: start: 20091112, end: 20091210
  2. TYSABRI [Suspect]
     Route: 042
     Dates: start: 20100201, end: 20100201
  3. TYSABRI [Suspect]
     Route: 042
     Dates: start: 20071207, end: 20080201
  4. BACLOFEN [Concomitant]

REACTIONS (9)
  - TREMOR [None]
  - MUSCULOSKELETAL DISORDER [None]
  - MUSCLE SPASMS [None]
  - VOMITING [None]
  - HEADACHE [None]
  - MUSCULOSKELETAL STIFFNESS [None]
  - VISION BLURRED [None]
  - NAUSEA [None]
  - PAIN [None]
